FAERS Safety Report 4350784-6 (Version None)
Quarter: 2004Q2

REPORT INFORMATION
  Report Type: 
  Country: None (occurrence: None)
  Receive Date: 20040430
  Receipt Date: 20040407
  Transmission Date: 20050107
  Serious: Yes (Disabling)
  Sender: FDA-Public Use
  Company Number: JP-ROCHE-363840

PATIENT
  Age: 56 Year
  Sex: Female
  Weight: 57 kg

DRUGS (4)
  1. XELODA [Suspect]
     Indication: BREAST CANCER
     Route: 048
     Dates: start: 20030924, end: 20040404
  2. EXEMESTANE [Concomitant]
     Indication: BREAST CANCER
     Route: 048
     Dates: start: 20031119, end: 20040404
  3. LOXOPROFEN SODIUM [Concomitant]
     Indication: PAIN
     Dates: start: 20030903
  4. REBAMIPIDE [Concomitant]
     Dates: start: 20030903

REACTIONS (5)
  - DRUG INEFFECTIVE [None]
  - FEMUR FRACTURE [None]
  - NEUROPATHY PERIPHERAL [None]
  - PAIN [None]
  - PAIN IN EXTREMITY [None]
